FAERS Safety Report 8034606 (Version 2)
Quarter: 2013Q2

REPORT INFORMATION
  Report Type: Spontaneous
  Country: US (occurrence: None)
  Receive Date: 20110627
  Receipt Date: 20120621
  Transmission Date: 20140414
  Serious: Yes (Disabling, Other)
  Sender: FDA-Public Use
  Company Number: FK201100088

PATIENT
  Age: 42 Year
  Sex: Male

DRUGS (5)
  1. SENSORCAINE-MPF WITH EPINEPHRINE [Suspect]
     Indication: MUSCULOSKELETAL PAIN
     Dosage: 270 ML, CONTINUOUS VIA PUMP LEFT SHOULDER, INTRA-ARTICULAR
     Route: 014
     Dates: start: 20080213
  2. SENSORCAINE-MPF WITH EPINEPHRINE [Suspect]
     Indication: INFILTRATION ANAESTHESIA
     Dosage: 270 ML, CONTINUOUS VIA PUMP LEFT SHOULDER, INTRA-ARTICULAR
     Route: 014
     Dates: start: 20080213
  3. UNSPECIFIED INGREDIENT [Suspect]
     Indication: MUSCULOSKELETAL PAIN
     Dosage: LEFT SHOULDER
     Dates: start: 20080213
  4. ANCEF(CEFAZOLIN SODIUM) [Concomitant]
  5. NORMAL SALINE (SODIUM CHLORIDE) [Concomitant]

REACTIONS (2)
  - CHONDROLYSIS [None]
  - MUSCULOSKELETAL PAIN [None]
